FAERS Safety Report 17403369 (Version 2)
Quarter: 2020Q1

REPORT INFORMATION
  Report Type: Report from Study
  Country: US (occurrence: US)
  Receive Date: 20200211
  Receipt Date: 20200316
  Transmission Date: 20200409
  Serious: Yes (Hospitalization)
  Sender: FDA-Public Use
  Company Number: US-ACTELION-A-US2019-193230

PATIENT
  Age: 53 Year
  Sex: Male
  Weight: 71.66 kg

DRUGS (5)
  1. ELIQUIS [Concomitant]
     Active Substance: APIXABAN
  2. ADEMPAS [Suspect]
     Active Substance: RIOCIGUAT
     Indication: PRODUCT USED FOR UNKNOWN INDICATION
     Dosage: 0.5 MG
     Route: 065
  3. OPSUMIT [Suspect]
     Active Substance: MACITENTAN
     Indication: PULMONARY ARTERIAL HYPERTENSION
     Dosage: 10 MG, QD
     Route: 048
  4. UPTRAVI [Suspect]
     Active Substance: SELEXIPAG
     Indication: PULMONARY ARTERIAL HYPERTENSION
     Dosage: 1600 MCG, BID
     Route: 048
  5. UPTRAVI [Suspect]
     Active Substance: SELEXIPAG
     Dosage: UNK
     Route: 048

REACTIONS (10)
  - Dyspepsia [Unknown]
  - Cough [Unknown]
  - Cardiac operation [Unknown]
  - Pulmonary hypertension [Unknown]
  - Swelling [Unknown]
  - Headache [Unknown]
  - Pulmonary endarterectomy [Unknown]
  - Chest discomfort [Unknown]
  - Sleep deficit [Unknown]
  - Unevaluable event [Unknown]

NARRATIVE: CASE EVENT DATE: 201907
